FAERS Safety Report 18109097 (Version 1)
Quarter: 2020Q3

REPORT INFORMATION
  Report Type: Spontaneous
  Country: ID (occurrence: ID)
  Receive Date: 20200804
  Receipt Date: 20200804
  Transmission Date: 20201103
  Serious: Yes (Hospitalization)
  Sender: FDA-Public Use
  Company Number: ID-UNIQUE PHARMACEUTICAL LABORATORIES-20200700001

PATIENT
  Age: 32 Year
  Sex: Female

DRUGS (6)
  1. CETIRIZINE HYDROCHLORIDE UNSPECIFIED [Suspect]
     Active Substance: CETIRIZINE HYDROCHLORIDE
     Indication: FOOD ALLERGY
     Dosage: 10 MILLIGRAM, QD
     Route: 048
  2. METHYLPREDNISOLONE. [Suspect]
     Active Substance: METHYLPREDNISOLONE
     Indication: BURNING SENSATION
     Dosage: 4 MILLIGRAM, BID
     Route: 048
  3. METHYLPREDNISOLONE. [Suspect]
     Active Substance: METHYLPREDNISOLONE
     Indication: RASH
  4. METHYLPREDNISOLONE. [Suspect]
     Active Substance: METHYLPREDNISOLONE
     Indication: PRURITUS
  5. METHYLPREDNISOLONE. [Suspect]
     Active Substance: METHYLPREDNISOLONE
     Indication: FOOD ALLERGY
  6. LORATADINE. [Suspect]
     Active Substance: LORATADINE
     Dosage: UNK, QD
     Route: 048

REACTIONS (2)
  - Chest discomfort [Recovering/Resolving]
  - Drug eruption [Recovering/Resolving]
